FAERS Safety Report 4356460-8 (Version None)
Quarter: 2004Q2

REPORT INFORMATION
  Report Type: 
  Country: None (occurrence: None)
  Receive Date: 20040506
  Receipt Date: 20040425
  Transmission Date: 20050107
  Serious: Yes (Other)
  Sender: FDA-Public Use
  Company Number: US013069

PATIENT
  Age: 18 Month
  Sex: Male

DRUGS (1)
  1. ACTIQ [Suspect]
     Dosage: 600 MG UG ONCE BUCCAL
     Route: 002
     Dates: start: 20040425, end: 20040425

REACTIONS (3)
  - ACCIDENTAL EXPOSURE [None]
  - MEDICATION ERROR [None]
  - NO ADVERSE EFFECT [None]
